FAERS Safety Report 19907812 (Version 1)
Quarter: 2021Q4

REPORT INFORMATION
  Report Type: Spontaneous
  Country: US (occurrence: US)
  Receive Date: 20211001
  Receipt Date: 20211001
  Transmission Date: 20220303
  Serious: No
  Sender: FDA-Public Use
  Company Number: US-SUNOVION-2021SUN003574

PATIENT
  Sex: Female
  Weight: 86.17 kg

DRUGS (2)
  1. LONHALA MAGNAIR [Suspect]
     Active Substance: GLYCOPYRROLATE
     Indication: Chronic obstructive pulmonary disease
     Dosage: 25 ?G, BID
     Route: 055
     Dates: end: 20210826
  2. LONHALA MAGNAIR [Suspect]
     Active Substance: GLYCOPYRROLATE
     Indication: Asthma
     Dosage: UNK
     Route: 055

REACTIONS (9)
  - Visual impairment [Unknown]
  - Feeling abnormal [Unknown]
  - Memory impairment [Unknown]
  - Cough [Unknown]
  - Device issue [Unknown]
  - Product dose omission issue [Unknown]
  - Therapy cessation [Unknown]
  - Incorrect dose administered [Unknown]
  - Off label use [Unknown]
